FAERS Safety Report 5122688-2 (Version None)
Quarter: 2006Q4

REPORT INFORMATION
  Report Type: 
  Country: None (occurrence: None)
  Receive Date: 20061005
  Receipt Date: 20061005
  Transmission Date: 20070319
  Serious: No
  Sender: FDA-Public Use
  Company Number: None

PATIENT
  Sex: Female
  Weight: 83.9154 kg

DRUGS (1)
  1. ZITHROMAX [Suspect]
     Indication: INFLUENZA
     Dosage: 5 TABS, 4 TABS, 3 TABS, 2 TABS,1 TAB UNTIL ALL TAKEN
     Dates: start: 19970319, end: 19970323

REACTIONS (4)
  - OEDEMA PERIPHERAL [None]
  - ONYCHOMADESIS [None]
  - SCAR [None]
  - SKIN EXFOLIATION [None]
